FAERS Safety Report 8848591 (Version 1)
Quarter: 2012Q4

REPORT INFORMATION
  Report Type: 
  Country: US (occurrence: US)
  Receive Date: 20121018
  Receipt Date: 20121018
  Transmission Date: 20130627
  Serious: Yes (Hospitalization)
  Sender: FDA-Public Use
  Company Number: US-ROCHE-1143188

PATIENT
  Age: 13 None
  Sex: Female
  Weight: 34.4 kg

DRUGS (12)
  1. NUTROPIN AQ [Suspect]
     Indication: GROWTH HORMONE DEFICIENCY
     Route: 058
     Dates: start: 19960830
  2. NUTROPIN AQ [Suspect]
     Route: 058
  3. NUTROPIN AQ [Suspect]
     Route: 058
  4. NUTROPIN AQ [Suspect]
     Dosage: 5 mg/ml
     Route: 058
  5. NUTROPIN AQ [Suspect]
     Dosage: 5 mg/ml
     Route: 058
  6. NUTROPIN AQ [Suspect]
     Dosage: 5 mg/ml
     Route: 058
  7. NUTROPIN AQ [Suspect]
     Dosage: 5 mg/ml
     Route: 058
  8. ADDERALL [Concomitant]
  9. PAXIL [Concomitant]
  10. CLONIDINE [Concomitant]
  11. DITROPAN [Concomitant]
  12. RITALIN [Concomitant]
     Indication: PSYCHOMOTOR HYPERACTIVITY

REACTIONS (14)
  - Gastroenteritis viral [Unknown]
  - Urinary tract infection [Unknown]
  - Otitis media acute [Unknown]
  - Pyelonephritis [Unknown]
  - Nocturia [Unknown]
  - Pain in extremity [Unknown]
  - Headache [Unknown]
  - Aggression [Unknown]
  - Incontinence [Unknown]
  - Cardiac murmur [Unknown]
  - Scoliosis [Unknown]
  - Spinal osteoarthritis [Unknown]
  - Attention deficit/hyperactivity disorder [Unknown]
  - Growth retardation [Unknown]
